FAERS Safety Report 17638642 (Version 1)
Quarter: 2020Q2

REPORT INFORMATION
  Report Type: Spontaneous
  Country: US (occurrence: US)
  Receive Date: 20200407
  Receipt Date: 20200407
  Transmission Date: 20200713
  Serious: No
  Sender: FDA-Public Use
  Company Number: None

PATIENT
  Age: 82 Year
  Sex: Male
  Weight: 71.28 kg

DRUGS (22)
  1. PIOGLITAZONE, 45MG, ORAL [Concomitant]
  2. FUROSEMIDE 20MG, ORAL [Concomitant]
  3. GLIMEPIRIDE, 4MG, ORAL [Concomitant]
  4. VITAMIN E BLEND 200 U, ORAL [Concomitant]
  5. IRON 90MG, ORAL [Concomitant]
  6. SIMVASTATIN 40MG, ORAL [Concomitant]
  7. KYPROLIS, 10MG ,ORAL [Concomitant]
  8. MONTELUKAST 10MG, ORAL [Concomitant]
  9. FLAX SEED OIL, 1000MG, ORAL [Concomitant]
  10. ONDANSETRON 8MG, ORAL [Concomitant]
  11. FENOFIBRATE 160MG,ORAL [Concomitant]
  12. LEVOTHYROXINE 75 MCG, ORAL [Concomitant]
  13. OMEPRAZOLE, 40MG, ORAL [Concomitant]
  14. DEXAMETHASONE, 4MG, ORAL [Concomitant]
  15. METFORMIN 1000MG, ORAL [Concomitant]
  16. PROMETHAZINE 25MG, ORAL [Concomitant]
  17. VITAMIN D 25 MCG, ORAL [Concomitant]
  18. XPOVIO [Suspect]
     Active Substance: SELINEXOR
     Indication: PLASMA CELL MYELOMA
     Route: 048
     Dates: start: 20191108, end: 20200407
  19. ASPIRIN 81MG, ORAL [Concomitant]
  20. CITALOPRAM 40MG, ORAL [Concomitant]
  21. MULTIVITAMIN ADULTS,ORAL [Concomitant]
  22. TAMSULOSIN 0.4MG, ORAL [Concomitant]

REACTIONS (1)
  - Death [None]

NARRATIVE: CASE EVENT DATE: 20200407
